FAERS Safety Report 6991716-1 (Version None)
Quarter: 2010Q3

REPORT INFORMATION
  Report Type: 
  Country: None (occurrence: None)
  Receive Date: 20100915
  Receipt Date: 20100915
  Transmission Date: 20110219
  Serious: No
  Sender: FDA-Public Use
  Company Number: None

PATIENT
  Age: 62 Year
  Sex: Female

DRUGS (1)
  1. MIDAZOLAM HCL [Suspect]
     Indication: SURGERY
     Dosage: ONCE IV BOLUS
     Route: 040
     Dates: start: 20100909, end: 20100909

REACTIONS (3)
  - PHLEBITIS [None]
  - PRODUCT QUALITY ISSUE [None]
  - SWELLING [None]
